FAERS Safety Report 9468923 (Version 2)
Quarter: 2013Q3

REPORT INFORMATION
  Report Type: Report from Study
  Country: US (occurrence: US)
  Receive Date: 20130821
  Receipt Date: 20130917
  Transmission Date: 20140515
  Serious: Yes (Disabling)
  Sender: FDA-Public Use
  Company Number: US-ROCHE-1262657

PATIENT
  Age: 65 Year
  Sex: Female

DRUGS (2)
  1. LUCENTIS [Suspect]
     Indication: VISUAL IMPAIRMENT
     Route: 050
     Dates: start: 201201, end: 201305
  2. LUCENTIS [Suspect]
     Indication: RETINAL VEIN OCCLUSION
     Route: 050
     Dates: start: 20111121, end: 20120720

REACTIONS (6)
  - Blindness [Not Recovered/Not Resolved]
  - Balance disorder [Not Recovered/Not Resolved]
  - Conjunctival disorder [Not Recovered/Not Resolved]
  - Eye pain [Recovered/Resolved]
  - Drug ineffective [Unknown]
  - Cataract [Unknown]
